FAERS Safety Report 7823496-1 (Version None)
Quarter: 2011Q4

REPORT INFORMATION
  Report Type: 
  Country: None (occurrence: None)
  Receive Date: 20111019
  Receipt Date: 20111014
  Transmission Date: 20120403
  Serious: Yes (Other)
  Sender: FDA-Public Use
  Company Number: DE-PFIZER INC-2011207669

PATIENT
  Age: 79 Year
  Sex: Male

DRUGS (4)
  1. LYRICA [Suspect]
     Indication: PAIN IN EXTREMITY
  2. FINASTERIDE [Concomitant]
     Dosage: 1 DF, 1X/DAY
  3. LYRICA [Suspect]
     Indication: POLYNEUROPATHY
     Dosage: 25 MG, 1X/DAY
     Route: 048
     Dates: start: 20110826, end: 20110829
  4. ACETYLSALICYLIC ACID [Concomitant]
     Dosage: 100 MG, 1X/DAY

REACTIONS (1)
  - IVTH NERVE PARALYSIS [None]
